FAERS Safety Report 5823824-2 (Version None)
Quarter: 2008Q3

REPORT INFORMATION
  Report Type: 
  Country: None (occurrence: None)
  Receive Date: 20080725
  Receipt Date: 20080716
  Transmission Date: 20090109
  Serious: Yes (Other)
  Sender: FDA-Public Use
  Company Number: JP-PFIZER INC-2008059715

PATIENT
  Age: 45 Year

DRUGS (4)
  1. ALPRAZOLAM [Suspect]
     Route: 048
  2. TRAZODONE HYDROCHLORIDE [Suspect]
     Route: 048
  3. FLUVOXAMINE MALEATE [Suspect]
     Indication: DEPRESSION
     Dosage: DAILY DOSE:150MG
     Route: 048
  4. FLUNITRAZEPAM [Concomitant]

REACTIONS (1)
  - NEUROLEPTIC MALIGNANT SYNDROME [None]
